FAERS Safety Report 9386962 (Version 1)
Quarter: 2013Q3

REPORT INFORMATION
  Report Type: Report from Study
  Country: NO (occurrence: NO)
  Receive Date: 20130708
  Receipt Date: 20130708
  Transmission Date: 20140515
  Serious: Yes (Other)
  Sender: FDA-Public Use
  Company Number: NO-ROCHE-1245345

PATIENT
  Sex: 0

DRUGS (1)
  1. NAPROXEN [Suspect]
     Indication: PRODUCT USED FOR UNKNOWN INDICATION
     Route: 064

REACTIONS (6)
  - Low birth weight baby [Unknown]
  - Small for dates baby [Unknown]
  - Apgar score low [Unknown]
  - Neonatal respiratory depression [Unknown]
  - Asthma [Unknown]
  - Maternal exposure timing unspecified [Unknown]
